FAERS Safety Report 10393326 (Version 3)
Quarter: 2018Q3

REPORT INFORMATION
  Report Type: Spontaneous
  Country: US (occurrence: US)
  Receive Date: 20140819
  Receipt Date: 20180723
  Transmission Date: 20181010
  Serious: Yes (Other)
  Sender: FDA-Public Use
  Company Number: US-PFIZER INC-2014228530

PATIENT
  Age: 53 Year
  Sex: Female

DRUGS (14)
  1. ESTROGEN [Concomitant]
     Active Substance: ESTROGENS
     Dosage: UNK
  2. PROVIGIL [Concomitant]
     Active Substance: MODAFINIL
     Dosage: UNK
  3. SYNTHROID [Concomitant]
     Active Substance: LEVOTHYROXINE SODIUM
     Dosage: UNK
  4. TRICOR [Concomitant]
     Active Substance: FENOFIBRATE
     Dosage: UNK
  5. XELJANZ [Suspect]
     Active Substance: TOFACITINIB CITRATE
     Indication: RHEUMATOID ARTHRITIS
     Dosage: 5 MG, 2X/DAY
     Route: 048
     Dates: start: 201401, end: 201412
  6. DRISDOL [Concomitant]
     Active Substance: ERGOCALCIFEROL
     Dosage: UNK
  7. TRAZODONE [Concomitant]
     Active Substance: TRAZODONE HYDROCHLORIDE
     Dosage: UNK
  8. PERCOCET [Concomitant]
     Active Substance: ACETAMINOPHEN\OXYCODONE HYDROCHLORIDE
     Dosage: UNK
  9. SKELAXIN [Concomitant]
     Active Substance: METAXALONE
     Dosage: UNK
  10. PROZAC [Concomitant]
     Active Substance: FLUOXETINE HYDROCHLORIDE
     Dosage: UNK
  11. TOPAMAX [Concomitant]
     Active Substance: TOPIRAMATE
     Dosage: UNK
  12. OXYCONTIN [Concomitant]
     Active Substance: OXYCODONE HYDROCHLORIDE
     Dosage: UNK
  13. NIACIN. [Concomitant]
     Active Substance: NIACIN
     Dosage: UNK
  14. RESTORIL [Concomitant]
     Active Substance: TEMAZEPAM
     Dosage: UNK

REACTIONS (3)
  - Nephrolithiasis [Unknown]
  - Platelet count abnormal [Not Recovered/Not Resolved]
  - Platelet count increased [Not Recovered/Not Resolved]

NARRATIVE: CASE EVENT DATE: 201401
